FAERS Safety Report 4625618-2 (Version None)
Quarter: 2005Q1

REPORT INFORMATION
  Report Type: 
  Country: None (occurrence: None)
  Receive Date: 20050331
  Receipt Date: 20050331
  Transmission Date: 20050727
  Serious: No
  Sender: FDA-Public Use
  Company Number: None

PATIENT
  Age: 63 Year
  Sex: Female

DRUGS (6)
  1. TAXOTERE [Suspect]
     Indication: NON-SMALL CELL LUNG CANCER STAGE IIIB
     Dosage: 20 MG/M2/WK IV (33 MG)
     Route: 042
     Dates: start: 20050316
  2. TAXOTERE [Suspect]
     Indication: NON-SMALL CELL LUNG CANCER STAGE IIIB
     Dosage: 20 MG/M2/WK IV (33 MG)
     Route: 042
     Dates: start: 20050323
  3. CARBOPLATIN [Suspect]
     Indication: NON-SMALL CELL LUNG CANCER STAGE IIIB
     Dosage: AUC 2 IV (242 MG)
     Dates: start: 20050316
  4. CARBOPLATIN [Suspect]
     Indication: NON-SMALL CELL LUNG CANCER STAGE IIIB
     Dosage: AUC 2 IV (242 MG)
     Dates: start: 20050323
  5. DECADRON [Concomitant]
  6. KYTRIL [Concomitant]

REACTIONS (5)
  - ASTHENIA [None]
  - DIZZINESS [None]
  - GASTROINTESTINAL HAEMORRHAGE [None]
  - HAEMOGLOBIN DECREASED [None]
  - RECTAL HAEMORRHAGE [None]
